FAERS Safety Report 23295419 (Version 1)
Quarter: 2023Q4

REPORT INFORMATION
  Report Type: Report from Study
  Country: US (occurrence: US)
  Receive Date: 20231214
  Receipt Date: 20231214
  Transmission Date: 20240109
  Serious: Yes (Hospitalization)
  Sender: FDA-Public Use
  Company Number: US-Eisai-EC-2023-155033

PATIENT
  Age: 64 Year
  Sex: Female

DRUGS (2)
  1. LENVIMA [Suspect]
     Active Substance: LENVATINIB
     Indication: Hepatocellular carcinoma
     Route: 048
     Dates: start: 20231005, end: 20231101
  2. LENVIMA [Suspect]
     Active Substance: LENVATINIB
     Route: 048
     Dates: start: 202311

REACTIONS (6)
  - Unresponsive to stimuli [Unknown]
  - Memory impairment [Unknown]
  - Pruritus [Unknown]
  - Peripheral swelling [Unknown]
  - Stomatitis [Unknown]
  - Taste disorder [Unknown]

NARRATIVE: CASE EVENT DATE: 20230101
